FAERS Safety Report 11815888 (Version 3)
Quarter: 2016Q1

REPORT INFORMATION
  Report Type: Report from Study
  Country: BR (occurrence: BR)
  Receive Date: 20151209
  Receipt Date: 20160107
  Transmission Date: 20160525
  Serious: Yes (Hospitalization, Other)
  Sender: FDA-Public Use
  Company Number: PHHY2015BR120607

PATIENT
  Age: 15 Year
  Sex: Male
  Weight: 46 kg

DRUGS (7)
  1. HIDROXIUREA [Concomitant]
     Active Substance: HYDROXYUREA
     Dosage: 2 DF, QD (THURSDAY, FRIDAY AND WEEKEND)
     Route: 048
  2. ROCEFIN [Concomitant]
     Active Substance: CEFTRIAXONE SODIUM
     Indication: PRODUCT USED FOR UNKNOWN INDICATION
     Route: 042
  3. FOLIC ACID. [Concomitant]
     Active Substance: FOLIC ACID
     Indication: SICKLE CELL ANAEMIA
     Dosage: 1 DF, QD
     Route: 048
  4. EXJADE [Suspect]
     Active Substance: DEFERASIROX
     Indication: THALASSAEMIA
  5. HIDROXIUREA [Concomitant]
     Active Substance: HYDROXYUREA
     Indication: SICKLE CELL ANAEMIA
     Dosage: 3 DF, QD (MONDAY, TUESDAY AND WEDNESDAY)
     Route: 048
     Dates: start: 2006
  6. EXJADE [Suspect]
     Active Substance: DEFERASIROX
     Indication: SICKLE CELL ANAEMIA
     Dosage: 15 MG/KG (750 MG), QD
     Route: 048
     Dates: start: 20060201
  7. COMPLEX B [Concomitant]
     Active Substance: CALCIUM PANTOTHENATE\CYANOCOBALAMIN\NIACINAMIDE\PYRIDOXINE HYDROCHLORIDE\RIBOFLAVIN\THIAMINE MONONITRATE
     Indication: SICKLE CELL ANAEMIA
     Dosage: 1 DF, QD
     Route: 048

REACTIONS (17)
  - Underweight [Recovered/Resolved]
  - Infection [Recovered/Resolved]
  - Serum ferritin increased [Unknown]
  - Pain [Recovered/Resolved]
  - Bone erosion [Recovering/Resolving]
  - Back pain [Unknown]
  - Coagulopathy [Unknown]
  - Red blood cell count decreased [Unknown]
  - Pain [Recovering/Resolving]
  - Osteopenia [Unknown]
  - Asthenia [Unknown]
  - Sickle cell anaemia with crisis [Unknown]
  - Influenza [Recovered/Resolved]
  - Pyrexia [Recovered/Resolved]
  - Haemoglobin decreased [Recovered/Resolved]
  - Suicidal ideation [Unknown]
  - Hypoacusis [Unknown]

NARRATIVE: CASE EVENT DATE: 201508
